FAERS Safety Report 7403452-8 (Version None)
Quarter: 2011Q2

REPORT INFORMATION
  Report Type: 
  Country: None (occurrence: None)
  Receive Date: 20110408
  Receipt Date: 20110401
  Transmission Date: 20111010
  Serious: Yes (Death)
  Sender: FDA-Public Use
  Company Number: B0690773A

PATIENT
  Sex: Male

DRUGS (3)
  1. ETOPOSIDE [Concomitant]
  2. FIRSTCIN [Concomitant]
     Indication: INFECTION
     Dosage: 3G PER DAY
     Route: 042
     Dates: start: 20030909, end: 20030920
  3. ALKERAN [Suspect]
     Indication: STEM CELL TRANSPLANT
     Route: 042
     Dates: start: 20030914, end: 20030915

REACTIONS (2)
  - TONGUE NEOPLASM MALIGNANT STAGE UNSPECIFIED [None]
  - SQUAMOUS CELL CARCINOMA [None]
